FAERS Safety Report 19360968 (Version 1)
Quarter: 2021Q2

REPORT INFORMATION
  Report Type: Report from Study
  Country: NL (occurrence: NL)
  Receive Date: 20210601
  Receipt Date: 20210601
  Transmission Date: 20210717
  Serious: Yes (Death)
  Sender: FDA-Public Use
  Company Number: NL-BAYER-2021-149223

PATIENT
  Age: 63 Year
  Sex: Female

DRUGS (1)
  1. ADEMPAS [Suspect]
     Active Substance: RIOCIGUAT
     Indication: PULMONARY HYPERTENSION
     Dosage: 1 DF, TID
     Route: 048
     Dates: start: 20190823, end: 20210522

REACTIONS (1)
  - Death [Fatal]

NARRATIVE: CASE EVENT DATE: 20210522
